FAERS Safety Report 7464725-6 (Version None)
Quarter: 2011Q2

REPORT INFORMATION
  Report Type: 
  Country: None (occurrence: None)
  Receive Date: 20110509
  Receipt Date: 20110426
  Transmission Date: 20111010
  Serious: Yes (Death, Other)
  Sender: FDA-Public Use
  Company Number: IE-ELI_LILLY_AND_COMPANY-IE201103004898

PATIENT
  Sex: Female
  Weight: 53.6 kg

DRUGS (13)
  1. LANOXIN [Concomitant]
     Dosage: 0.125 MG, QD
  2. MIDON [Concomitant]
  3. QUININE SULFATE [Concomitant]
     Dosage: 300 MG, QD
  4. ASPIRIN [Concomitant]
     Dosage: 75 MG, QD
  5. FORTEO [Suspect]
     Indication: OSTEOPOROSIS
     Dosage: 20 UG, QD
     Route: 058
     Dates: start: 20110203, end: 20110217
  6. CALCICHEW [Concomitant]
  7. ATORVASTATIN [Concomitant]
     Dosage: 40 MG, QD
  8. FURSEMIDE [Concomitant]
     Dosage: 40 MG, QD
  9. GALFER [Concomitant]
     Dosage: UNK, QD
  10. ZOTON [Concomitant]
     Dosage: 30 MG, QD
  11. NOVOMIX 30                         /02607201/ [Concomitant]
     Dosage: 34 U, QD
  12. ELTROXIN [Concomitant]
     Dosage: 50 MG, QD
  13. LIPOSTAT [Concomitant]

REACTIONS (2)
  - CARDIOGENIC SHOCK [None]
  - ACUTE MYOCARDIAL INFARCTION [None]
